FAERS Safety Report 9882741 (Version 1)
Quarter: 2014Q1

REPORT INFORMATION
  Report Type: Spontaneous
  Country: US (occurrence: US)
  Receive Date: 20140207
  Receipt Date: 20140207
  Transmission Date: 20141002
  Serious: Yes (Hospitalization)
  Sender: FDA-Public Use
  Company Number: US-VERTEX PHARMACEUTICALS INC-2014-000559

PATIENT
  Sex: Male

DRUGS (2)
  1. KALYDECO [Suspect]
     Indication: CYSTIC FIBROSIS
     Dosage: UNK
     Dates: start: 2012, end: 201402
  2. SINGULAIR [Concomitant]

REACTIONS (2)
  - Disease progression [Not Recovered/Not Resolved]
  - Petechiae [Unknown]
